FAERS Safety Report 15776205 (Version 1)
Quarter: 2018Q4

REPORT INFORMATION
  Report Type: Spontaneous
  Country: US (occurrence: US)
  Receive Date: 20181211
  Receipt Date: 20181211
  Transmission Date: 20190205
  Serious: No
  Sender: FDA-Public Use
  Company Number: None

PATIENT
  Age: 69 Year
  Sex: Female

DRUGS (1)
  1. IMATINIB MES TAB 100MG [Suspect]
     Active Substance: IMATINIB MESYLATE
     Indication: CHRONIC MYELOID LEUKAEMIA
     Dates: start: 201810

REACTIONS (5)
  - Pruritus [None]
  - Dyspnoea [None]
  - Swelling [None]
  - Paraesthesia [None]
  - Mouth swelling [None]

NARRATIVE: CASE EVENT DATE: 20181208
